FAERS Safety Report 12495048 (Version 1)
Quarter: 2016Q2

REPORT INFORMATION
  Report Type: Spontaneous
  Country: CN (occurrence: CN)
  Receive Date: 20160624
  Receipt Date: 20160624
  Transmission Date: 20160815
  Serious: Yes (Death, Hospitalization)
  Sender: FDA-Public Use
  Company Number: CN-GLENMARK PHARMACEUTICALS INC, USA.-2016GMK023370

PATIENT
  Age: 38 Year
  Sex: Female

DRUGS (2)
  1. LEVOFLOXACIN. [Suspect]
     Active Substance: LEVOFLOXACIN
     Indication: PNEUMONIA
     Dosage: UNK
     Route: 065
  2. ERTAPENEM [Suspect]
     Active Substance: ERTAPENEM
     Indication: PNEUMONIA
     Dosage: UNK

REACTIONS (5)
  - Bone marrow failure [Fatal]
  - Cerebral haemorrhage [Fatal]
  - Subarachnoid haemorrhage [Fatal]
  - Drug ineffective [Fatal]
  - Septic shock [Fatal]
